FAERS Safety Report 24807868 (Version 4)
Quarter: 2025Q2

REPORT INFORMATION
  Report Type: Spontaneous
  Country: US (occurrence: US)
  Receive Date: 20250106
  Receipt Date: 20250617
  Transmission Date: 20250717
  Serious: Yes (Other)
  Sender: TAKEDA
  Company Number: US-TAKEDA-2024TUS130906

PATIENT
  Sex: Female

DRUGS (9)
  1. ENTYVIO [Suspect]
     Active Substance: VEDOLIZUMAB
     Indication: Colitis
     Dosage: 300 MILLIGRAM, Q4WEEKS
  2. ENTYVIO [Suspect]
     Active Substance: VEDOLIZUMAB
     Dosage: 300 MILLIGRAM, Q6WEEKS
  3. ENTYVIO [Suspect]
     Active Substance: VEDOLIZUMAB
     Dosage: 300 MILLIGRAM, Q6WEEKS
  4. CELECOXIB [Concomitant]
     Active Substance: CELECOXIB
  5. VITAMIN D3 [Concomitant]
     Active Substance: CHOLECALCIFEROL
  6. MAGNESIUM [Concomitant]
     Active Substance: MAGNESIUM
  7. B12 [Concomitant]
  8. HERBALS [Concomitant]
     Active Substance: HERBALS
  9. IRON [Concomitant]
     Active Substance: IRON

REACTIONS (7)
  - Colitis [Unknown]
  - Product prescribing issue [Unknown]
  - Pain [Unknown]
  - Product use issue [Unknown]
  - Product dose omission issue [Unknown]
  - Fall [Unknown]
  - Therapeutic reaction time decreased [Unknown]
